FAERS Safety Report 8987803 (Version 2)
Quarter: 2013Q1

REPORT INFORMATION
  Report Type: Spontaneous
  Country: US (occurrence: US)
  Receive Date: 20121227
  Receipt Date: 20130205
  Transmission Date: 20140127
  Serious: Yes (Death, Other)
  Sender: FDA-Public Use
  Company Number: US-PFIZER INC-2012325195

PATIENT
  Age: 58 Year
  Sex: Male

DRUGS (19)
  1. INLYTA [Suspect]
     Indication: MALIGNANT MAST CELL NEOPLASM
     Dosage: 5 MG, 2X/DAY
     Route: 048
     Dates: start: 20121127
  2. INLYTA [Suspect]
     Indication: RENAL CELL CARCINOMA
  3. ZOLPIDEM TARTRATE [Concomitant]
     Dosage: UNK
  4. COUMADINE [Concomitant]
     Indication: ANTICOAGULANT THERAPY
     Dosage: UNK
  5. FOLIC ACID [Concomitant]
     Dosage: UNK
  6. THIAMINE [Concomitant]
     Dosage: UNK
  7. ACETAMINOPHEN [Concomitant]
     Dosage: UNK
  8. VITAMIN B COMPLEX [Concomitant]
     Dosage: UNK
  9. ACETAMINOPHEN W/OXYCODONE [Concomitant]
     Dosage: UNK
  10. OMEPRAZOLE [Concomitant]
     Dosage: UNK
  11. IBUPROFEN [Concomitant]
     Dosage: UNK
  12. FERROUS FUMARATE [Concomitant]
     Dosage: UNK
  13. DOCUSATE SODIUM [Concomitant]
     Dosage: UNK
  14. AMLODIPINE BESILATE [Concomitant]
     Dosage: UNK
  15. MORPHINE SULFATE ER [Concomitant]
     Dosage: UNK
  16. MEGESTROL ACETATE [Concomitant]
     Dosage: UNK
  17. MAGNESIUM HYDROXIDE [Concomitant]
     Dosage: UNK
  18. MORPHINE [Concomitant]
     Indication: PAIN
     Dosage: UNK
  19. OXYCODONE [Concomitant]
     Indication: PAIN
     Dosage: UNK

REACTIONS (2)
  - Death [Fatal]
  - Dry mouth [Unknown]
